FAERS Safety Report 17468916 (Version 1)
Quarter: 2020Q1

REPORT INFORMATION
  Report Type: Spontaneous
  Country: US (occurrence: US)
  Receive Date: 20200227
  Receipt Date: 20200227
  Transmission Date: 20200409
  Serious: No
  Sender: FDA-Public Use
  Company Number: US-AEGERION PHARMACEUTICAL, INC-AEGR004468

PATIENT
  Sex: Male
  Weight: 48.98 kg

DRUGS (2)
  1. BACTERIOSTATIC WATER [Concomitant]
     Active Substance: WATER
     Indication: INJECTION
  2. MYALEPT [Suspect]
     Active Substance: METRELEPTIN
     Indication: LIPODYSTROPHY ACQUIRED
     Dosage: 10 MG, QD
     Route: 058

REACTIONS (1)
  - Paraesthesia [Unknown]
